FAERS Safety Report 26030772 (Version 1)
Quarter: 2025Q4

REPORT INFORMATION
  Report Type: Spontaneous
  Country: GB (occurrence: GB)
  Receive Date: 20251112
  Receipt Date: 20251112
  Transmission Date: 20260118
  Serious: Yes (Other)
  Sender: AUROBINDO
  Company Number: GB-MHRA-TPP62492275C32146823YC1761657078712

PATIENT
  Age: 73 Year
  Sex: Female
  Weight: 110 kg

DRUGS (15)
  1. CARVEDILOL [Suspect]
     Active Substance: CARVEDILOL
     Indication: Product used for unknown indication
     Dosage: 3.125 MILLIGRAM
     Route: 048
     Dates: start: 20250918, end: 20251016
  2. BISOPROLOL [Concomitant]
     Active Substance: BISOPROLOL
     Indication: Ill-defined disorder
     Dosage: TAKE A TABLET EVERY OTHER DAY AT NIGHT
     Route: 065
     Dates: start: 20251028
  3. NEBIVOLOL [Concomitant]
     Active Substance: NEBIVOLOL
     Indication: Ill-defined disorder
     Dosage: TAKE ONE DAILY
     Route: 065
     Dates: start: 20250901, end: 20250929
  4. DERMOL [Concomitant]
     Active Substance: BENZALKONIUM CHLORIDE\CHLORHEXIDINE HYDROCHLORIDE\ISOPROPYL MYRISTATE\PARAFFIN
     Indication: Ill-defined disorder
     Dosage: USE REGULARLY ON LEGS AT LEAST 4 TIMES A DAY
     Route: 065
     Dates: start: 20250918, end: 20251018
  5. FEXOFENADINE [Concomitant]
     Active Substance: FEXOFENADINE HYDROCHLORIDE
     Indication: Ill-defined disorder
     Dosage: TAKE ONE DAILY TO SUPPRESS ALLERGIC SYMPTOMS
     Route: 065
     Dates: start: 20250922, end: 20251022
  6. Viscopaste pb7 [Concomitant]
     Indication: Ill-defined disorder
     Dosage: USE AS DIRECTED
     Route: 065
     Dates: start: 20251003, end: 20251004
  7. DOXYCYCLINE [Concomitant]
     Active Substance: DOXYCYCLINE
     Indication: Ill-defined disorder
     Dosage: TAKE TWO NOW, THEN ONE DAILY FOR 6 DAYS TO TREA...
     Route: 065
     Dates: start: 20250506
  8. HYDROCORTISONE [Concomitant]
     Active Substance: HYDROCORTISONE
     Indication: Ill-defined disorder
     Dosage: APPLY THINLY ONCE OR TWICE DAILY
     Route: 065
     Dates: start: 20251016, end: 20251023
  9. PREDNISOLONE [Concomitant]
     Active Substance: PREDNISOLONE
     Indication: Ill-defined disorder
     Dosage: SIX TO BE TAKEN ALL TOGETHER AS ONE DOSE (30MG)...
     Route: 065
     Dates: start: 20250506
  10. RAMIPRIL [Concomitant]
     Active Substance: RAMIPRIL
     Indication: Ill-defined disorder
     Dosage: ONE TO BE TAKEN EACH DAY
     Route: 065
     Dates: start: 20250506
  11. ALBUTEROL [Concomitant]
     Active Substance: ALBUTEROL
     Indication: Ill-defined disorder
     Dosage: C
     Route: 065
     Dates: start: 20250506
  12. BECLOMETHASONE DIPROPIONATE\FORMOTEROL FUMARATE\GLYCOPYRROLATE [Concomitant]
     Active Substance: BECLOMETHASONE DIPROPIONATE\FORMOTEROL FUMARATE\GLYCOPYRROLATE
     Indication: Ill-defined disorder
     Dosage: TWO PUFFS TWICE DAILY
     Route: 065
     Dates: start: 20250506
  13. Cetraben [Concomitant]
     Indication: Ill-defined disorder
     Dosage: C
     Route: 065
     Dates: start: 20250612
  14. SPIRONOLACTONE [Concomitant]
     Active Substance: SPIRONOLACTONE
     Indication: Ill-defined disorder
     Dosage: TAKE ONE DAILY
     Route: 065
     Dates: start: 20250704, end: 20250731
  15. AMITRIPTYLINE HYDROCHLORIDE [Concomitant]
     Active Substance: AMITRIPTYLINE HYDROCHLORIDE
     Indication: Ill-defined disorder
     Dosage: ONE EACH NIGHT
     Route: 065
     Dates: start: 20250731

REACTIONS (1)
  - Eczema [Recovered/Resolved]
